FAERS Safety Report 8891312 (Version 3)
Quarter: 2013Q2

REPORT INFORMATION
  Report Type: Spontaneous
  Country: US (occurrence: US)
  Receive Date: 20121107
  Receipt Date: 20130610
  Transmission Date: 20140414
  Serious: Yes (Hospitalization, Other)
  Sender: FDA-Public Use
  Company Number: US-009507513-1204USA01000

PATIENT
  Sex: Female
  Weight: 80.27 kg

DRUGS (6)
  1. FOSAMAX [Suspect]
     Indication: OSTEOPENIA
     Dosage: 35 MG, UNK
     Route: 048
     Dates: start: 19991207
  2. FOSAMAX [Suspect]
     Dosage: 70 MG, UNK
     Route: 048
     Dates: start: 20041213
  3. FOSAMAX [Suspect]
     Dosage: 70 MG, UNK
     Route: 048
     Dates: start: 20090102
  4. FOSAMAX [Suspect]
     Dosage: UNK
     Route: 048
     Dates: start: 19991207, end: 201008
  5. ZOCOR [Concomitant]
     Indication: BLOOD CHOLESTEROL INCREASED
     Dosage: UNK
     Route: 048
     Dates: start: 199902
  6. ALENDRONATE SODIUM [Suspect]
     Dosage: 70 MG, UNK

REACTIONS (28)
  - Femur fracture [Unknown]
  - Intramedullary rod insertion [Unknown]
  - Rectal haemorrhage [Unknown]
  - Bunion [Unknown]
  - Deep vein thrombosis [Unknown]
  - Low turnover osteopathy [Unknown]
  - Vitamin D deficiency [Unknown]
  - Calcium deficiency [Unknown]
  - Stress urinary incontinence [Unknown]
  - Diabetes mellitus [Unknown]
  - Tooth disorder [Unknown]
  - Gingivectomy [Unknown]
  - Endodontic procedure [Unknown]
  - Dental cleaning [Unknown]
  - Hypertension [Unknown]
  - Venous insufficiency [Unknown]
  - Contusion [Unknown]
  - Renal cyst [Unknown]
  - Sleep apnoea syndrome [Unknown]
  - Diverticulitis [Unknown]
  - Diverticulum [Unknown]
  - Intestinal ischaemia [Unknown]
  - Inflammatory bowel disease [Unknown]
  - Arteriovenous malformation [Unknown]
  - Abdominal adhesions [Unknown]
  - Hyperlipidaemia [Unknown]
  - Oedema peripheral [Not Recovered/Not Resolved]
  - Diarrhoea [Unknown]
